FAERS Safety Report 18767743 (Version 1)
Quarter: 2021Q1

REPORT INFORMATION
  Report Type: Spontaneous
  Country: US (occurrence: US)
  Receive Date: 20210120
  Receipt Date: 20210120
  Transmission Date: 20210419
  Serious: Yes (Other)
  Sender: FDA-Public Use
  Company Number: None

PATIENT
  Age: 27 Year
  Sex: Female
  Weight: 63 kg

DRUGS (1)
  1. ETHINYL ESTRADIOL/ETONOGESTREL (ETHINYL ESTRADION ETONOGESTREL 0.01 [Suspect]
     Active Substance: ETHINYL ESTRADIOL\ETONOGESTREL
     Indication: CONTRACEPTION
     Dates: start: 20200720, end: 20200905

REACTIONS (3)
  - Abortion induced [None]
  - Product substitution issue [None]
  - Pregnancy with contraceptive device [None]

NARRATIVE: CASE EVENT DATE: 20200905
